FAERS Safety Report 13662475 (Version 1)
Quarter: 2017Q2

REPORT INFORMATION
  Report Type: Report from Study
  Country: US (occurrence: US)
  Receive Date: 20170617
  Receipt Date: 20170617
  Transmission Date: 20170830
  Serious: Yes (Death)
  Sender: FDA-Public Use
  Company Number: US-TORRENT-00002947

PATIENT
  Age: 53 Year
  Sex: Female

DRUGS (5)
  1. SERTRALINE [Suspect]
     Active Substance: SERTRALINE HYDROCHLORIDE
  2. ALPRAZOLAM. [Suspect]
     Active Substance: ALPRAZOLAM
  3. BUPROPION. [Suspect]
     Active Substance: BUPROPION
  4. ZIPRASIDONE. [Suspect]
     Active Substance: ZIPRASIDONE
  5. DULOXETINE. [Suspect]
     Active Substance: DULOXETINE

REACTIONS (4)
  - Toxicity to various agents [Fatal]
  - Completed suicide [Fatal]
  - Exposure via ingestion [None]
  - Intentional overdose [None]
